FAERS Safety Report 12921514 (Version 1)
Quarter: 2016Q4

REPORT INFORMATION
  Report Type: Report from Study
  Country: US (occurrence: US)
  Receive Date: 20161108
  Receipt Date: 20161108
  Transmission Date: 20170207
  Serious: Yes (Hospitalization, Other)
  Sender: FDA-Public Use
  Company Number: US-BRISTOL-MYERS SQUIBB COMPANY-BMS-2016-089945

PATIENT
  Sex: Female

DRUGS (1)
  1. NIVOLUMAB [Suspect]
     Active Substance: NIVOLUMAB
     Indication: NON-SMALL CELL LUNG CANCER
     Dosage: UNK, Q2WK
     Route: 042
     Dates: start: 20160519

REACTIONS (17)
  - Aspiration pleural cavity [Unknown]
  - Urinary tract infection [Unknown]
  - Constipation [Recovered/Resolved]
  - Gastrooesophageal reflux disease [Unknown]
  - Myalgia [Unknown]
  - Mouth ulceration [Recovering/Resolving]
  - Full blood count decreased [Unknown]
  - Micturition urgency [Recovering/Resolving]
  - Local swelling [Unknown]
  - Pleural effusion [Unknown]
  - Venous stent insertion [Unknown]
  - Contusion [Unknown]
  - Decreased appetite [Unknown]
  - Depression [Unknown]
  - Fatigue [Unknown]
  - Transfusion [Unknown]
  - Visual impairment [Unknown]
